FAERS Safety Report 15859829 (Version 1)
Quarter: 2019Q1

REPORT INFORMATION
  Report Type: Spontaneous
  Country: NZ (occurrence: NZ)
  Receive Date: 20190123
  Receipt Date: 20190123
  Transmission Date: 20190417
  Serious: Yes (Hospitalization, Other)
  Sender: FDA-Public Use
  Company Number: NZ-MYLANLABS-2019M1001352

PATIENT
  Age: 61 Year
  Sex: Male
  Weight: 74.2 kg

DRUGS (15)
  1. MULTIVITAMINS                      /00116001/ [Concomitant]
     Active Substance: VITAMINS
     Indication: PRODUCT USED FOR UNKNOWN INDICATION
     Dosage: UNK, AM
     Route: 048
     Dates: start: 20181109
  2. RISPERIDONE. [Concomitant]
     Active Substance: RISPERIDONE
     Indication: PRODUCT USED FOR UNKNOWN INDICATION
     Dosage: 0.5 MILLIGRAM, QID
     Route: 048
     Dates: start: 20181119, end: 20181214
  3. MOLAXOLE [Concomitant]
     Active Substance: POLYETHYLENE GLYCOL 3350\POTASSIUM CHLORIDE\SODIUM BICARBONATE\SODIUM CHLORIDE
     Indication: PRODUCT USED FOR UNKNOWN INDICATION
     Dosage: UNK, BID
     Route: 048
     Dates: start: 20181214, end: 20190109
  4. CLOZARIL [Suspect]
     Active Substance: CLOZAPINE
     Dosage: 37.5 MILLIGRAM, PM
     Route: 048
     Dates: start: 20181219, end: 20181221
  5. CLOZARIL [Suspect]
     Active Substance: CLOZAPINE
     Dosage: 75 MILLIGRAM, PM
     Route: 048
     Dates: start: 20181231, end: 20190102
  6. COLECALCIFEROL [Concomitant]
     Active Substance: CHOLECALCIFEROL
     Indication: PRODUCT USED FOR UNKNOWN INDICATION
     Dosage: 2.5 MILLIGRAM, MONTHLY
     Route: 048
     Dates: start: 20181201
  7. CLOZARIL [Suspect]
     Active Substance: CLOZAPINE
     Dosage: 50 MILLIGRAM, PM
     Route: 048
     Dates: start: 20181221, end: 20181224
  8. LAXSOL [Concomitant]
     Active Substance: DOCUSATE SODIUM\SENNOSIDES A AND B
     Indication: PRODUCT USED FOR UNKNOWN INDICATION
     Dosage: UNK, BID
     Route: 048
     Dates: start: 20181128
  9. THIAMINE. [Concomitant]
     Active Substance: THIAMINE
     Indication: PRODUCT USED FOR UNKNOWN INDICATION
     Dosage: 100 MILLIGRAM, QD
     Route: 048
     Dates: start: 20181109
  10. CLOZARIL [Suspect]
     Active Substance: CLOZAPINE
     Indication: SEXUALLY INAPPROPRIATE BEHAVIOUR
     Dosage: 12.5 MILLIGRAM, PM
     Route: 048
     Dates: start: 20181213, end: 20181217
  11. SODIUM VALPROATE [Concomitant]
     Active Substance: VALPROATE SODIUM
     Indication: PRODUCT USED FOR UNKNOWN INDICATION
     Dosage: 500 MILLIGRAM, BID
     Route: 048
     Dates: start: 20181109, end: 20190112
  12. CLOZARIL [Suspect]
     Active Substance: CLOZAPINE
     Indication: KORSAKOFF^S SYNDROME
     Dosage: 6.25 MILLIGRAM, PM
     Route: 048
     Dates: start: 20181212, end: 20181213
  13. CLOZARIL [Suspect]
     Active Substance: CLOZAPINE
     Dosage: 25 MILLIGRAM, PM
     Route: 048
     Dates: start: 20181217, end: 20181219
  14. CLOZARIL [Suspect]
     Active Substance: CLOZAPINE
     Dosage: 62.5 MILLIGRAM, PM
     Route: 048
     Dates: start: 20181224, end: 20181231
  15. ZOPICLONE [Concomitant]
     Active Substance: ZOPICLONE
     Indication: PRODUCT USED FOR UNKNOWN INDICATION
     Dosage: 7.5 MILLIGRAM, PM
     Route: 048
     Dates: start: 20181108

REACTIONS (3)
  - Product use in unapproved indication [Unknown]
  - Myocarditis [Recovered/Resolved]
  - Left ventricular hypertrophy [Unknown]

NARRATIVE: CASE EVENT DATE: 20181212
